FAERS Safety Report 12812621 (Version 1)
Quarter: 2016Q4

REPORT INFORMATION
  Report Type: Spontaneous
  Country: JP (occurrence: JP)
  Receive Date: 20161005
  Receipt Date: 20161005
  Transmission Date: 20170207
  Serious: Yes (Death)
  Sender: FDA-Public Use
  Company Number: JP-ELI_LILLY_AND_COMPANY-JP201610000589

PATIENT
  Age: 62 Year
  Sex: Male
  Weight: 55 kg

DRUGS (3)
  1. HUMULIN R [Suspect]
     Active Substance: INSULIN HUMAN
     Indication: BLOOD GLUCOSE INCREASED
     Dosage: 10 IU, UNK
     Route: 042
     Dates: start: 20160121, end: 20160121
  2. HUMULIN R [Suspect]
     Active Substance: INSULIN HUMAN
     Dosage: 20 IU, UNK
     Route: 042
     Dates: start: 20160121, end: 20160121
  3. HUMULIN R [Suspect]
     Active Substance: INSULIN HUMAN
     Dosage: 80 IU, UNK
     Route: 042
     Dates: start: 20160121, end: 20160121

REACTIONS (1)
  - Pancreatic carcinoma [Fatal]

NARRATIVE: CASE EVENT DATE: 20160608
